FAERS Safety Report 10062702 (Version 1)
Quarter: 2014Q2

REPORT INFORMATION
  Report Type: Spontaneous
  Country: US (occurrence: US)
  Receive Date: 20140407
  Receipt Date: 20140407
  Transmission Date: 20141212
  Serious: Yes (Hospitalization)
  Sender: FDA-Public Use
  Company Number: US-GLAXOSMITHKLINE-A1067301A

PATIENT
  Age: 75 Year
  Sex: Male

DRUGS (6)
  1. VOTRIENT [Suspect]
     Indication: RENAL CELL CARCINOMA
     Dosage: 800MG PER DAY
     Route: 048
     Dates: start: 201402, end: 201403
  2. HYDROCORTISONE [Concomitant]
  3. LEVOTHYROXINE [Concomitant]
  4. ENALAPRIL [Concomitant]
  5. PANTOPRAZOLE [Concomitant]
  6. XARELTO [Concomitant]

REACTIONS (9)
  - Pulmonary embolism [Not Recovered/Not Resolved]
  - Thrombosis [Unknown]
  - Asthenia [Unknown]
  - Decreased appetite [Unknown]
  - Blood pressure increased [Unknown]
  - Headache [Unknown]
  - Eye infection viral [Unknown]
  - Arthralgia [Unknown]
  - Myalgia [Unknown]
